FAERS Safety Report 5021131-1 (Version None)
Quarter: 2006Q2

REPORT INFORMATION
  Report Type: 
  Country: None (occurrence: None)
  Receive Date: 20060425
  Receipt Date: 20050307
  Transmission Date: 20061013
  Serious: No
  Sender: FDA-Public Use
  Company Number: WAES 0503USA00957

PATIENT
  Age: 6 Year
  Sex: Male

DRUGS (1)
  1. SINGULAIR [Suspect]
     Indication: SEASONAL ALLERGY
     Dosage: PO
     Route: 048
     Dates: start: 20040701, end: 20040901

REACTIONS (1)
  - PAIN IN EXTREMITY [None]
